FAERS Safety Report 4598140-X (Version None)
Quarter: 2005Q1

REPORT INFORMATION
  Report Type: 
  Country: None (occurrence: None)
  Receive Date: 20050301
  Receipt Date: 20050301
  Transmission Date: 20050727
  Serious: Yes (Other)
  Sender: FDA-Public Use
  Company Number: None

PATIENT
  Age: 45 Year
  Sex: Male
  Weight: 106.5953 kg

DRUGS (18)
  1. EPHEDRINE (GUAIFENESIN/EPHEDRINE) [Suspect]
     Indication: WEIGHT DECREASED
     Dosage: 30-40 TABS PO DAILY (DURATION: X FEW WEEKS)
     Dates: start: 20041001
  2. ACETAMINOPHEN [Concomitant]
  3. IRON DEXTRAN [Concomitant]
  4. ALBUTEROL [Concomitant]
  5. IPATROPIUM BROMIDE [Concomitant]
  6. OLANZAPINE [Concomitant]
  7. CLONAZEPAM [Concomitant]
  8. LITHIUM CARBONATE [Concomitant]
  9. SERTRALINE HCL [Concomitant]
  10. THIAMINE HCL [Concomitant]
  11. CALCIUM CARBONATE [Concomitant]
  12. DOCUSATE [Concomitant]
  13. FERROUS SULFATE TAB [Concomitant]
  14. PYRIDOXINE HCL [Concomitant]
  15. GABAPENTIN [Concomitant]
  16. CAPSAICIN [Concomitant]
  17. LIDOCAINE [Concomitant]
  18. OXYCODONE HCL [Concomitant]

REACTIONS (8)
  - DEHYDRATION [None]
  - DIARRHOEA [None]
  - FEELING ABNORMAL [None]
  - HYPERALDOSTERONISM [None]
  - HYPOKALAEMIA [None]
  - METABOLIC ACIDOSIS [None]
  - OVERDOSE [None]
  - SELF-MEDICATION [None]
